FAERS Safety Report 13013514 (Version 2)
Quarter: 2016Q4

REPORT INFORMATION
  Report Type: Spontaneous
  Country: DE (occurrence: DE)
  Receive Date: 20161209
  Receipt Date: 20161216
  Transmission Date: 20170207
  Serious: Yes (Hospitalization, Other)
  Sender: FDA-Public Use
  Company Number: DE-009507513-1612DEU000920

PATIENT
  Age: 29 Year
  Sex: Female

DRUGS (1)
  1. IMPLANON [Suspect]
     Active Substance: ETONOGESTREL
     Indication: CONTRACEPTION
     Dosage: 1 DF, UNK
     Route: 059
     Dates: start: 20161103, end: 20161109

REACTIONS (8)
  - Implant site infection [Recovered/Resolved]
  - Purulent discharge [Recovered/Resolved]
  - General anaesthesia [Recovered/Resolved]
  - Surgery [Recovered/Resolved]
  - Implant site inflammation [Recovered/Resolved]
  - Lymphangitis [Unknown]
  - Abscess [Unknown]
  - Product sterility lacking [Unknown]

NARRATIVE: CASE EVENT DATE: 201611
